FAERS Safety Report 16631311 (Version 1)
Quarter: 2019Q3

REPORT INFORMATION
  Report Type: Spontaneous
  Country: FR (occurrence: FR)
  Receive Date: 20190725
  Receipt Date: 20190725
  Transmission Date: 20191004
  Serious: Yes (Hospitalization)
  Sender: FDA-Public Use
  Company Number: FR-PFIZER INC-2019309905

PATIENT
  Age: 46 Year
  Sex: Female
  Weight: 113 kg

DRUGS (11)
  1. LAMALINE (ACETAMINOPHEN\CAFFEINE\OPIUM) [Concomitant]
     Active Substance: ACETAMINOPHEN\CAFFEINE\OPIUM
     Dosage: 1 DF, UNK
     Route: 048
  2. RIFADINE [RIFAMPICIN] [Suspect]
     Active Substance: RIFAMPIN
     Dosage: 600 MG, DAILY
     Dates: start: 20190329, end: 20190329
  3. ECONAZOLE NITRATE. [Concomitant]
     Active Substance: ECONAZOLE NITRATE
     Dosage: UNK
     Route: 003
  4. RIFADINE [RIFAMPICIN] [Suspect]
     Active Substance: RIFAMPIN
     Dosage: 900 MG, DAILY
     Dates: start: 20190430, end: 20190430
  5. RIFADINE [RIFAMPICIN] [Suspect]
     Active Substance: RIFAMPIN
     Dosage: 600 MG, DAILY
     Dates: start: 20190421, end: 20190421
  6. COVERAM [Concomitant]
     Active Substance: AMLODIPINE\PERINDOPRIL
     Dosage: UNK
     Route: 048
  7. DESLORATADINE. [Concomitant]
     Active Substance: DESLORATADINE
     Dosage: 5 MG, UNK
     Route: 048
  8. RIFADINE [RIFAMPICIN] [Suspect]
     Active Substance: RIFAMPIN
     Indication: PSEUDOMENINGOCELE
     Dosage: 900 MG, DAILY
     Route: 048
     Dates: start: 20190317, end: 20190317
  9. DALACINE [Suspect]
     Active Substance: CLINDAMYCIN
     Dosage: 2400 MG, DAILY (900 MG IN THE MORNING-600MG AT NOON-900 MG IN THE EVENING)
     Route: 048
     Dates: start: 20190415, end: 20190421
  10. DOLIPRANE [Concomitant]
     Active Substance: ACETAMINOPHEN
     Dosage: 6 DF, UNK
     Route: 048
  11. CEFOXITIN [Concomitant]
     Active Substance: CEFOXITIN SODIUM
     Indication: PSEUDOMENINGOCELE
     Dosage: 6 G, UNK
     Route: 048
     Dates: start: 20190412, end: 20190503

REACTIONS (2)
  - Fungal infection [Recovering/Resolving]
  - Diarrhoea [Recovered/Resolved]

NARRATIVE: CASE EVENT DATE: 20190409
